FAERS Safety Report 19894836 (Version 6)
Quarter: 2023Q2

REPORT INFORMATION
  Report Type: Other
  Country: GB (occurrence: GB)
  Receive Date: 20210929
  Receipt Date: 20230413
  Transmission Date: 20230721
  Serious: Yes (Disabling, Other)
  Sender: FDA-Public Use
  Company Number: None

PATIENT

DRUGS (6)
  1. MOMETASONE FUROATE [Suspect]
     Active Substance: MOMETASONE FUROATE
     Indication: Eczema
     Dosage: UNK (TOOK FOR 5 DAYS INITIALLY AND THEN ATTEMPTED TO WEAN OFF BY REDUCING DOSAGE UNTIL STOP 9TH OF A
     Route: 061
     Dates: start: 20210211, end: 2021
  2. MOMETASONE FUROATE [Suspect]
     Active Substance: MOMETASONE FUROATE
     Dosage: UNK (FORMULATION: NASAL SPRAY, SUSPENSION)
     Route: 061
     Dates: start: 2021, end: 20210409
  3. EUMOVATE [Suspect]
     Active Substance: CLOBETASONE BUTYRATE
     Indication: Eczema
     Dosage: 1 DOSAGE FORM, QD (APPLIED TO NECK, CHEST AND ARMS)
     Route: 061
     Dates: start: 20210118, end: 2021
  4. EUMOVATE [Suspect]
     Active Substance: CLOBETASONE BUTYRATE
     Dosage: 1 DOSAGE FORM, QD
     Route: 061
     Dates: start: 2021, end: 20210205
  5. HYDROCORTISONE [Suspect]
     Active Substance: HYDROCORTISONE
     Indication: Eczema
     Dosage: 1 DOSAGE FORM, OD (1 DF, QD)
     Route: 061
     Dates: start: 20210118, end: 2021
  6. HYDROCORTISONE [Suspect]
     Active Substance: HYDROCORTISONE
     Dosage: 1 DOSAGE FORM, OD
     Route: 061
     Dates: start: 2021, end: 20210204

REACTIONS (15)
  - Topical steroid withdrawal reaction [Not Recovered/Not Resolved]
  - Oedema [Not Recovered/Not Resolved]
  - Skin weeping [Not Recovered/Not Resolved]
  - Insomnia [Unknown]
  - Skin exfoliation [Not Recovered/Not Resolved]
  - Skin fissures [Not Recovered/Not Resolved]
  - Depression [Unknown]
  - Temperature regulation disorder [Unknown]
  - Body temperature abnormal [Not Recovered/Not Resolved]
  - Rash [Not Recovered/Not Resolved]
  - Inappropriate schedule of product discontinuation [Unknown]
  - Erythema [Not Recovered/Not Resolved]
  - Eczema [Not Recovered/Not Resolved]
  - Product use issue [Unknown]
  - Drug ineffective [Unknown]

NARRATIVE: CASE EVENT DATE: 20210409
